FAERS Safety Report 16881804 (Version 1)
Quarter: 2019Q4

REPORT INFORMATION
  Report Type: Spontaneous
  Country: US (occurrence: US)
  Receive Date: 20191003
  Receipt Date: 20191003
  Transmission Date: 20200122
  Serious: No
  Sender: FDA-Public Use
  Company Number: US-BAUSCH-BL-2019-026408

PATIENT
  Age: 59 Year
  Sex: Female

DRUGS (2)
  1. LUMIFY [Suspect]
     Active Substance: BRIMONIDINE TARTRATE
     Dosage: SHE PICKED UP A NEW BOTTLE OF LUMIFY AND STARTED USE ON 10-SEP-2019
     Route: 047
     Dates: start: 2019, end: 20190911
  2. LUMIFY [Suspect]
     Active Substance: BRIMONIDINE TARTRATE
     Indication: OCULAR HYPERAEMIA
     Dosage: START DATE: 6 MONTHS AGO FROM THE DATE OF REPORT
     Route: 047
     Dates: start: 2019, end: 20190911

REACTIONS (5)
  - Foreign body sensation in eyes [Unknown]
  - Headache [Recovering/Resolving]
  - Lacrimation increased [Unknown]
  - Product quality issue [Unknown]
  - Eye irritation [Not Recovered/Not Resolved]

NARRATIVE: CASE EVENT DATE: 20190910
